FAERS Safety Report 23348544 (Version 1)
Quarter: 2023Q4

REPORT INFORMATION
  Report Type: Spontaneous
  Country: ID (occurrence: ID)
  Receive Date: 20231228
  Receipt Date: 20231228
  Transmission Date: 20240109
  Serious: Yes (Other)
  Sender: FDA-Public Use
  Company Number: ID-NOVITIUMPHARMA-2023IDNVP02249

PATIENT
  Age: 61 Year
  Sex: Male

DRUGS (9)
  1. MEGESTROL ACETATE [Suspect]
     Active Substance: MEGESTROL ACETATE
     Indication: Clear cell renal cell carcinoma
  2. DOCETAXEL [Concomitant]
     Active Substance: DOCETAXEL\DOCETAXEL ANHYDROUS
     Indication: Clear cell renal cell carcinoma
  3. DOXORUBICIN [Concomitant]
     Active Substance: DOXORUBICIN
     Indication: Clear cell renal cell carcinoma
  4. CYCLOPHOSPHAMIDE [Concomitant]
     Active Substance: CYCLOPHOSPHAMIDE
     Indication: Clear cell renal cell carcinoma
  5. PEMBROLIZUMAB [Concomitant]
     Active Substance: PEMBROLIZUMAB
     Indication: Clear cell renal cell carcinoma
  6. AXITINIB [Concomitant]
     Active Substance: AXITINIB
     Indication: Clear cell renal cell carcinoma
  7. PAZOPANIB [Concomitant]
     Active Substance: PAZOPANIB
     Indication: Clear cell renal cell carcinoma
  8. LENVATINIB [Concomitant]
     Active Substance: LENVATINIB
     Indication: Clear cell renal cell carcinoma
  9. EVEROLIMUS [Concomitant]
     Active Substance: EVEROLIMUS
     Indication: Clear cell renal cell carcinoma

REACTIONS (4)
  - Cytomegalovirus infection reactivation [Unknown]
  - Acinetobacter infection [Unknown]
  - Candida infection [Unknown]
  - Bacterial infection [Unknown]
